FAERS Safety Report 4327936-4 (Version None)
Quarter: 2004Q1

REPORT INFORMATION
  Report Type: 
  Country: None (occurrence: None)
  Receive Date: 20040325
  Receipt Date: 20040311
  Transmission Date: 20041129
  Serious: Yes (Hospitalization)
  Sender: FDA-Public Use
  Company Number: 2004AP01560

PATIENT
  Age: 15 Year
  Sex: Female

DRUGS (5)
  1. SEROQUEL [Suspect]
     Indication: SCHIZOPHRENIA
     Dosage: 4800 MG DAILY PO
     Route: 048
     Dates: start: 20040201
  2. ROHYPNOL [Concomitant]
  3. DEPROMEL [Concomitant]
  4. CHLORPROMAZINE HCL [Concomitant]
  5. GASMOTIN [Concomitant]

REACTIONS (5)
  - BLOOD LACTATE DEHYDROGENASE INCREASED [None]
  - DEPRESSED LEVEL OF CONSCIOUSNESS [None]
  - MYOGLOBINURIA [None]
  - OVERDOSE [None]
  - SUICIDE ATTEMPT [None]
